FAERS Safety Report 14097503 (Version 1)
Quarter: 2017Q4

REPORT INFORMATION
  Report Type: Spontaneous
  Country: US (occurrence: US)
  Receive Date: 20171017
  Receipt Date: 20171017
  Transmission Date: 20180321
  Serious: Yes (Death, Life-Threatening, Hospitalization, Disabling)
  Sender: FDA-Public Use
  Company Number: None

PATIENT
  Age: 83 Year
  Sex: Female
  Weight: 49.5 kg

DRUGS (1)
  1. ZYLOPRIM [Suspect]
     Active Substance: ALLOPURINOL
     Indication: BLOOD URIC ACID
     Route: 048

REACTIONS (10)
  - Chills [None]
  - Fatigue [None]
  - Abdominal pain upper [None]
  - Skin reaction [None]
  - Asthenia [None]
  - Vomiting [None]
  - Dysuria [None]
  - Diarrhoea [None]
  - Arthralgia [None]
  - Eye irritation [None]

NARRATIVE: CASE EVENT DATE: 20170727
